FAERS Safety Report 5261549-5 (Version None)
Quarter: 2007Q1

REPORT INFORMATION
  Report Type: 
  Country: None (occurrence: None)
  Receive Date: 20070307
  Receipt Date: 20070221
  Transmission Date: 20070707
  Serious: Yes (Hospitalization)
  Sender: FDA-Public Use
  Company Number: 236965

PATIENT
  Age: 65 Year
  Sex: Female
  Weight: 50 kg

DRUGS (3)
  1. LUCENTIS [Suspect]
     Indication: MACULAR DEGENERATION
     Dosage: UNK, UNK, INTRAVITREAL
     Dates: start: 20061117
  2. SINTROM [Concomitant]
  3. TAMBOCOR [Concomitant]

REACTIONS (1)
  - CEREBROVASCULAR ACCIDENT [None]
